FAERS Safety Report 4850116-0 (Version None)
Quarter: 2005Q4

REPORT INFORMATION
  Report Type: 
  Country: None (occurrence: None)
  Receive Date: 20051123
  Receipt Date: 20041015
  Transmission Date: 20060501
  Serious: Yes (Hospitalization)
  Sender: FDA-Public Use
  Company Number: 2004078969

PATIENT
  Age: 53 Year
  Sex: Male

DRUGS (6)
  1. LIPITOR [Suspect]
     Indication: DIABETES MELLITUS INSULIN-DEPENDENT
     Dosage: (40 MG)
     Dates: start: 20040101
  2. LISINOPRIL [Concomitant]
  3. INSULIN [Concomitant]
  4. LEVOTHYROXINE SODIUM [Concomitant]
  5. ASPIRIN [Concomitant]
  6. BUPROPION HYDROCHLORIDE [Concomitant]

REACTIONS (1)
  - CHEST PAIN [None]
